FAERS Safety Report 4337373-4 (Version None)
Quarter: 2004Q2

REPORT INFORMATION
  Report Type: 
  Country: None (occurrence: None)
  Receive Date: 20040413
  Receipt Date: 20040408
  Transmission Date: 20050107
  Serious: Yes (Other)
  Sender: FDA-Public Use
  Company Number: 200413989GDDC

PATIENT
  Age: 21 Year
  Sex: Male

DRUGS (9)
  1. METRONIDAZOLE [Suspect]
     Indication: CONSTIPATION
     Route: 048
  2. METRONIDAZOLE [Suspect]
     Indication: DYSPEPSIA
     Route: 048
  3. METRONIDAZOLE [Suspect]
     Indication: FLATULENCE
     Route: 048
  4. GASEX [Concomitant]
     Route: 048
  5. PAPAIN [Concomitant]
     Route: 048
  6. UNIENZYME [Concomitant]
     Route: 048
  7. SIMETHICONE [Concomitant]
     Route: 048
  8. NICOTINAMIDE [Concomitant]
     Route: 048
  9. ACTIVATED CHARCOAL [Concomitant]
     Route: 048

REACTIONS (2)
  - DERMATITIS BULLOUS [None]
  - DRUG ERUPTION [None]
